FAERS Safety Report 6733542-4 (Version None)
Quarter: 2010Q2

REPORT INFORMATION
  Report Type: 
  Country: None (occurrence: None)
  Receive Date: 20100520
  Receipt Date: 20100510
  Transmission Date: 20101027
  Serious: Yes (Death, Life-Threatening)
  Sender: FDA-Public Use
  Company Number: DK-PFIZER INC-2010059569

PATIENT
  Age: 41 Year
  Sex: Male

DRUGS (1)
  1. ECALTA [Suspect]
     Dosage: UNK
     Dates: start: 20100509

REACTIONS (1)
  - HAEMORRHAGE [None]
